FAERS Safety Report 10012533 (Version 2)
Quarter: 2014Q2

REPORT INFORMATION
  Report Type: Spontaneous
  Country: US (occurrence: US)
  Receive Date: 20140312
  Receipt Date: 20140430
  Transmission Date: 20141212
  Serious: No
  Sender: FDA-Public Use
  Company Number: US-PFIZER INC-2014068150

PATIENT
  Age: 41 Year
  Sex: Male
  Weight: 101 kg

DRUGS (3)
  1. ADVIL PM [Suspect]
     Indication: HEADACHE
     Dosage: 200 MG, THREE TIMES IN A DAY
     Dates: start: 2004
  2. NOVOLOG(R) [Concomitant]
     Indication: DIABETES MELLITUS
     Dosage: 60 IU, TWO TIMES A DAY
  3. METFORMIN [Concomitant]
     Indication: DIABETES MELLITUS
     Dosage: 1000 MG, TWO TIMES A DAY

REACTIONS (5)
  - Poor quality drug administered [Unknown]
  - Thyroid function test abnormal [Unknown]
  - Blood cholesterol abnormal [Unknown]
  - Blood glucose increased [Unknown]
  - Product packaging quantity issue [Unknown]
